FAERS Safety Report 19283690 (Version 1)
Quarter: 2021Q2

REPORT INFORMATION
  Report Type: Spontaneous
  Country: JP (occurrence: JP)
  Receive Date: 20210521
  Receipt Date: 20210521
  Transmission Date: 20210717
  Serious: Yes (Death, Other)
  Sender: FDA-Public Use
  Company Number: JP-ASTELLAS-2021JP009199

PATIENT
  Age: 7 Decade
  Sex: Male

DRUGS (2)
  1. GONAX [Suspect]
     Active Substance: DEGARELIX
     Indication: PROSTATE CANCER
     Dosage: 480 MG, EVERY 12 WEEKS
     Route: 058
     Dates: start: 20200624, end: 20201003
  2. XTANDI [Suspect]
     Active Substance: ENZALUTAMIDE
     Indication: PROSTATE CANCER
     Route: 048
     Dates: start: 20200624, end: 20201003

REACTIONS (1)
  - Drowning [Fatal]

NARRATIVE: CASE EVENT DATE: 20201003
